FAERS Safety Report 16219650 (Version 1)
Quarter: 2019Q2

REPORT INFORMATION
  Report Type: Spontaneous
  Country: ES (occurrence: ES)
  Receive Date: 20190420
  Receipt Date: 20190420
  Transmission Date: 20190711
  Serious: Yes (Disabling)
  Sender: FDA-Public Use
  Company Number: ES-AUROBINDO-AUR-APL-2019-021155

PATIENT

DRUGS (5)
  1. TOPIRAMATE. [Suspect]
     Active Substance: TOPIRAMATE
     Indication: MIGRAINE
     Dosage: UNK
     Route: 065
  2. ZONEGRAN [Suspect]
     Active Substance: ZONISAMIDE
     Indication: MIGRAINE
     Dosage: UNK
     Route: 065
  3. BELOKEN [Suspect]
     Active Substance: METOPROLOL TARTRATE
     Indication: MIGRAINE
     Dosage: UNK
     Route: 065
  4. AMITRIPTYLINE [Suspect]
     Active Substance: AMITRIPTYLINE
     Indication: MIGRAINE
     Dosage: UNK
     Route: 065
  5. FLUNARIZINE [Suspect]
     Active Substance: FLUNARIZINE
     Indication: MIGRAINE
     Dosage: UNK
     Route: 065

REACTIONS (1)
  - Treatment failure [Unknown]
